FAERS Safety Report 7309264-8 (Version None)
Quarter: 2011Q1

REPORT INFORMATION
  Report Type: 
  Country: None (occurrence: None)
  Receive Date: 20110223
  Receipt Date: 20110215
  Transmission Date: 20110831
  Serious: Yes (Other)
  Sender: FDA-Public Use
  Company Number: US-PFIZER INC-2010140354

PATIENT
  Sex: Female
  Weight: 68.027 kg

DRUGS (5)
  1. PLAVIX [Concomitant]
     Dosage: 75 MG, DAILY
  2. ZOLOFT [Concomitant]
     Dosage: 50 MG, UNK
  3. TOPROL-XL [Concomitant]
     Dosage: 50 MG, DAILY
  4. DETROL [Concomitant]
     Indication: MICTURITION DISORDER
     Dosage: UNK
  5. LIPITOR [Suspect]
     Indication: BLOOD CHOLESTEROL INCREASED
     Dosage: 80 MG, DAILY
     Route: 048
     Dates: start: 20060101

REACTIONS (5)
  - HYPOTHYROIDISM [None]
  - PRODUCT ODOUR ABNORMAL [None]
  - PRODUCT TASTE ABNORMAL [None]
  - MALAISE [None]
  - HEADACHE [None]
